FAERS Safety Report 5276019-8 (Version None)
Quarter: 2007Q1

REPORT INFORMATION
  Report Type: 
  Country: None (occurrence: None)
  Receive Date: 20070326
  Receipt Date: 20070226
  Transmission Date: 20070707
  Serious: Yes (Death, Hospitalization)
  Sender: FDA-Public Use
  Company Number: FR-JNJFOC-20061203694

PATIENT
  Sex: Male
  Weight: 61 kg

DRUGS (14)
  1. TMC114 [Suspect]
     Route: 048
  2. TMC114 [Suspect]
     Indication: HIV INFECTION
     Route: 048
  3. NORVIR [Suspect]
     Indication: HIV INFECTION
     Route: 048
  4. FUZEON [Concomitant]
     Indication: HIV INFECTION
     Route: 058
  5. RETROVIR [Concomitant]
     Indication: HIV INFECTION
     Route: 048
  6. VIREAD [Concomitant]
     Indication: HIV INFECTION
     Route: 048
  7. ZERIT [Concomitant]
     Indication: HIV INFECTION
     Route: 048
  8. WELLVONE [Concomitant]
     Route: 048
  9. ZOLOFT [Concomitant]
     Route: 048
  10. LEDERFOLINE [Concomitant]
     Route: 048
  11. LAMISIL [Concomitant]
     Route: 048
  12. OFLOCET [Concomitant]
     Route: 048
  13. AZACTAM [Concomitant]
     Route: 048
  14. TARGOCID [Concomitant]
     Route: 048

REACTIONS (10)
  - ABDOMINAL PAIN [None]
  - BICYTOPENIA [None]
  - DEMENTIA [None]
  - ENCEPHALITIS CYTOMEGALOVIRUS [None]
  - HEPATOMEGALY [None]
  - LACTIC ACIDOSIS [None]
  - NEUTROPENIA [None]
  - PSEUDOMONAS INFECTION [None]
  - PYREXIA [None]
  - STAPHYLOCOCCAL INFECTION [None]
